FAERS Safety Report 8045314-1 (Version None)
Quarter: 2012Q1

REPORT INFORMATION
  Report Type: 
  Country: None (occurrence: None)
  Receive Date: 20120113
  Receipt Date: 20120111
  Transmission Date: 20120608
  Serious: Yes (Other)
  Sender: FDA-Public Use
  Company Number: US-SHIRE-ALL1-2011-05041

PATIENT
  Sex: Male
  Weight: 24.49 kg

DRUGS (3)
  1. ADDERALL XR 10 [Suspect]
     Dosage: 10 MG, 1X/DAY:QD
     Route: 048
     Dates: start: 20111017, end: 20111113
  2. ADDERALL XR 10 [Suspect]
     Indication: ATTENTION DEFICIT/HYPERACTIVITY DISORDER
     Dosage: 20 MG, 1X/DAY:QD
     Route: 048
     Dates: start: 20111209, end: 20111220
  3. ADDERALL XR 10 [Suspect]
     Dosage: 15 MG, 1X/DAY:QD
     Route: 048
     Dates: start: 20111114, end: 20111208

REACTIONS (1)
  - HALLUCINATION [None]
